FAERS Safety Report 5152352-5 (Version None)
Quarter: 2006Q4

REPORT INFORMATION
  Report Type: 
  Country: None (occurrence: None)
  Receive Date: 20061116
  Receipt Date: 20061025
  Transmission Date: 20070319
  Serious: Yes (Hospitalization)
  Sender: FDA-Public Use
  Company Number: 2006AP05165

PATIENT
  Age: 47 Year
  Sex: Female
  Weight: 64 kg

DRUGS (1)
  1. MARCAIN SPINAL INJECTION [Suspect]
     Indication: SPINAL ANAESTHESIA
     Route: 037
     Dates: start: 20060216, end: 20060216

REACTIONS (1)
  - SUBDURAL HAEMATOMA [None]
